FAERS Safety Report 7285469-X (Version None)
Quarter: 2011Q1

REPORT INFORMATION
  Report Type: 
  Country: None (occurrence: None)
  Receive Date: 20110210
  Receipt Date: 20110131
  Transmission Date: 20110831
  Serious: Yes (Other)
  Sender: FDA-Public Use
  Company Number: AU-NOVOPROD-322525

PATIENT
  Age: 49 Year
  Sex: Female

DRUGS (2)
  1. NOVORAPID [Suspect]
     Indication: PRODUCT USED FOR UNKNOWN INDICATION
     Dosage: 5 U, TID
     Route: 058
     Dates: start: 20101228, end: 20101228
  2. LANTUS [Concomitant]

REACTIONS (4)
  - DYSPNOEA [None]
  - INJECTION SITE PRURITUS [None]
  - LIP SWELLING [None]
  - INJECTION SITE RASH [None]
